FAERS Safety Report 4595136-9 (Version None)
Quarter: 2005Q1

REPORT INFORMATION
  Report Type: 
  Country: None (occurrence: None)
  Receive Date: 20050224
  Receipt Date: 20040229
  Transmission Date: 20050727
  Serious: Yes (Other)
  Sender: FDA-Public Use
  Company Number: GXKR2004CH00736

PATIENT
  Age: 30 Year
  Sex: Male

DRUGS (3)
  1. PAROXETINE HCL [Suspect]
     Indication: MAJOR DEPRESSION
     Dosage: 40 MG
  2. DIAZEPAM [Concomitant]
  3. MIRTAZAPINE [Concomitant]

REACTIONS (1)
  - GYNAECOMASTIA [None]
